FAERS Safety Report 4878030-5 (Version None)
Quarter: 2005Q4

REPORT INFORMATION
  Report Type: 
  Country: None (occurrence: None)
  Receive Date: 20051206
  Receipt Date: 20050831
  Transmission Date: 20060501
  Serious: No
  Sender: FDA-Public Use
  Company Number: USA0509107639

PATIENT
  Age: 26 Year
  Sex: Female
  Weight: 60 kg

DRUGS (5)
  1. CYMBALTA [Suspect]
     Indication: ARTHRITIS
     Dosage: 30 MG DAY
     Dates: start: 20050215, end: 20050228
  2. CYMBALTA [Suspect]
     Indication: DEPRESSION
     Dosage: 30 MG DAY
     Dates: start: 20050215, end: 20050228
  3. DILAUDID [Concomitant]
  4. DURAGESIC-100 [Concomitant]
  5. CELEBREX [Concomitant]

REACTIONS (2)
  - ANGER [None]
  - HOMICIDAL IDEATION [None]
